FAERS Safety Report 4808315-X (Version None)
Quarter: 2005Q4

REPORT INFORMATION
  Report Type: 
  Country: None (occurrence: None)
  Receive Date: 20051021
  Receipt Date: 20040114
  Transmission Date: 20060501
  Serious: No
  Sender: FDA-Public Use
  Company Number: DE_040112788

PATIENT
  Age: 77 Year
  Sex: Female

DRUGS (3)
  1. ZYPREXA [Suspect]
     Indication: DELUSIONAL DISORDER, PERSECUTORY TYPE
     Dosage: 10 MG/DAY
     Dates: start: 20020905
  2. ASPIRIN [Concomitant]
  3. DIASPORAL(MAGNESIUM CITRATE) [Concomitant]

REACTIONS (2)
  - MYELOPROLIFERATIVE DISORDER [None]
  - PLATELET COUNT INCREASED [None]
